FAERS Safety Report 8407327-7 (Version None)
Quarter: 2012Q2

REPORT INFORMATION
  Report Type: 
  Country: None (occurrence: None)
  Receive Date: 20120604
  Receipt Date: 20120529
  Transmission Date: 20120825
  Serious: Yes (Life-Threatening, Hospitalization)
  Sender: FDA-Public Use
  Company Number: DE-PFIZER INC-2012129462

PATIENT
  Sex: Male

DRUGS (4)
  1. VORICONAZOLE [Suspect]
     Indication: ASPERGILLOSIS
     Dosage: 200 MG, 2X/DAY
     Route: 042
     Dates: start: 20120523
  2. MOTILIUM [Concomitant]
     Dosage: 40 GTT, UNK
  3. LORAZEPAM [Concomitant]
     Dosage: 2 MG, AS NEEDED
     Route: 042
  4. RANITIDIN ^ALIUD PHARMA^ [Concomitant]
     Dosage: 50 MG, UNK

REACTIONS (5)
  - TRANSAMINASES INCREASED [None]
  - RENAL FAILURE ACUTE [None]
  - MULTI-ORGAN FAILURE [None]
  - ACUTE HEPATIC FAILURE [None]
  - LIVER FUNCTION TEST ABNORMAL [None]
